FAERS Safety Report 18369267 (Version 2)
Quarter: 2021Q1

REPORT INFORMATION
  Report Type: Report from Study
  Country: None (occurrence: US)
  Receive Date: 20201012
  Receipt Date: 20210329
  Transmission Date: 20210419
  Serious: Yes (Hospitalization, Other)
  Sender: FDA-Public Use
  Company Number: US-ABBVIE-20K-163-3590660-00

PATIENT
  Sex: Male

DRUGS (2)
  1. IMBRUVICA [Suspect]
     Active Substance: IBRUTINIB
     Route: 048
     Dates: start: 20190514
  2. IMBRUVICA [Suspect]
     Active Substance: IBRUTINIB
     Indication: CHRONIC LYMPHOCYTIC LEUKAEMIA
     Route: 048
     Dates: start: 20190508

REACTIONS (7)
  - Bladder cancer [Unknown]
  - Lung disorder [Unknown]
  - Blood sodium decreased [Unknown]
  - Prostatic disorder [Unknown]
  - Chronic kidney disease [Unknown]
  - Stent removal [Unknown]
  - Hospitalisation [Unknown]
